FAERS Safety Report 15784102 (Version 3)
Quarter: 2021Q3

REPORT INFORMATION
  Report Type: Spontaneous
  Country: TW (occurrence: TW)
  Receive Date: 20190103
  Receipt Date: 20210909
  Transmission Date: 20211014
  Serious: Yes (Other)
  Sender: FDA-Public Use
  Company Number: TW-AMGEN-TWNSP2018187169

PATIENT
  Age: 64 Year
  Sex: Male

DRUGS (3)
  1. ENBREL [Suspect]
     Active Substance: ETANERCEPT
     Dosage: 25 MG, BIW
     Route: 058
  2. CELEBREX [Concomitant]
     Active Substance: CELECOXIB
     Indication: ANKYLOSING SPONDYLITIS
     Dosage: 1 DF, BID, PRN
     Route: 065
  3. ENBREL [Suspect]
     Active Substance: ETANERCEPT
     Indication: ANKYLOSING SPONDYLITIS
     Dosage: 25 MG, BIW
     Route: 058
     Dates: start: 20120223, end: 201902

REACTIONS (2)
  - Metastasis [Unknown]
  - Rectal cancer [Recovering/Resolving]
